FAERS Safety Report 10476577 (Version 1)
Quarter: 2014Q3

REPORT INFORMATION
  Report Type: Spontaneous
  Country: US (occurrence: None)
  Receive Date: 20140923
  Receipt Date: 20140923
  Transmission Date: 20150326
  Serious: Yes (Other)
  Sender: FDA-Public Use
  Company Number: 001802795A

PATIENT
  Age: 27 Year
  Sex: Male

DRUGS (1)
  1. PROACTIV SOLUTION RENEWING CLEANSER [Suspect]
     Active Substance: BENZOYL PEROXIDE
     Indication: ACNE
     Dosage: DERMAL
     Dates: start: 201309

REACTIONS (3)
  - Anaphylactic shock [None]
  - Rash erythematous [None]
  - Swelling face [None]

NARRATIVE: CASE EVENT DATE: 201309
